FAERS Safety Report 4316107-3 (Version None)
Quarter: 2004Q1

REPORT INFORMATION
  Report Type: 
  Country: None (occurrence: None)
  Receive Date: 20040310
  Receipt Date: 20020123
  Transmission Date: 20041129
  Serious: Yes (Hospitalization)
  Sender: FDA-Public Use
  Company Number: 30018702-01J18G31-1

PATIENT
  Age: 42 Year
  Sex: Male
  Weight: 88 kg

DRUGS (14)
  1. EXTRANEAL [Suspect]
     Dosage: 7.5% ICODEXTRIN 2.5 L:QD
     Dates: start: 20000501
  2. INSULATARD NPH HUMAN [Concomitant]
  3. B-COMBIN SAD [Concomitant]
  4. APOVIT C-VITAMIN [Concomitant]
  5. INSULIN PARANOVA [Concomitant]
  6. FERRO DURETTER (FERROUS SULFATE) [Concomitant]
  7. DIMITONE (CARVEDILOL) [Concomitant]
  8. CORODIL (ENALAPRIL) [Concomitant]
  9. ETALPHA (ALFACALCIDOL) [Concomitant]
  10. FOLIC ACID DAK [Concomitant]
  11. BUMETANIDE [Concomitant]
  12. SPIRIX (SPIRONOLACTONE) [Concomitant]
  13. CALCIUM ACETATE (CALCIUM ACETATE) [Concomitant]
  14. EPREX [Concomitant]

REACTIONS (1)
  - PERITONITIS [None]
